FAERS Safety Report 20046361 (Version 1)
Quarter: 2021Q4

REPORT INFORMATION
  Report Type: Spontaneous
  Country: US (occurrence: None)
  Receive Date: 20211108
  Receipt Date: 20211108
  Transmission Date: 20220303
  Serious: Yes (Death)
  Sender: FDA-Public Use
  Company Number: None

PATIENT
  Sex: Male

DRUGS (6)
  1. TEMOZOLOMIDE [Suspect]
     Active Substance: TEMOZOLOMIDE
     Indication: Neoplasm malignant
     Dosage: FREQUENCY : DAILY;?
     Route: 048
     Dates: start: 20210727
  2. BACTRIM DS [Concomitant]
     Active Substance: SULFAMETHOXAZOLE\TRIMETHOPRIM
     Dosage: OTHER STRENGTH : 800-160;?
  3. MEGESTROL SUS 625/5ML [Concomitant]
  4. PREDNISONE [Concomitant]
     Active Substance: PREDNISONE
  5. PRILOSEC OTC TAB 20MG [Concomitant]
  6. VITAMIN D3 CHW 2000UNIT [Concomitant]

REACTIONS (1)
  - Death [None]
